FAERS Safety Report 14798754 (Version 1)
Quarter: 2018Q2

REPORT INFORMATION
  Report Type: Spontaneous
  Country: BR (occurrence: BR)
  Receive Date: 20180424
  Receipt Date: 20180424
  Transmission Date: 20180711
  Serious: Yes (Other)
  Sender: FDA-Public Use
  Company Number: BR-ROCHE-2111570

PATIENT
  Sex: Female

DRUGS (2)
  1. RIVOTRIL [Suspect]
     Active Substance: CLONAZEPAM
     Indication: ISCHAEMIA
     Dosage: 5 DROPS 4 TIMES PER DAY
     Route: 065
  2. RIVOTRIL [Suspect]
     Active Substance: CLONAZEPAM
     Indication: PANIC DISORDER
     Dosage: 8 DROPS  DAILY
     Route: 065
     Dates: start: 2013

REACTIONS (10)
  - Intentional product use issue [Unknown]
  - Drug dependence [Not Recovered/Not Resolved]
  - Amnesia [Not Recovered/Not Resolved]
  - Dizziness [Not Recovered/Not Resolved]
  - Myosclerosis [Not Recovered/Not Resolved]
  - Thermal burn [Unknown]
  - Off label use [Unknown]
  - Speech disorder [Not Recovered/Not Resolved]
  - Cardiac disorder [Unknown]
  - Product dropper issue [Unknown]

NARRATIVE: CASE EVENT DATE: 2013
